FAERS Safety Report 6404380-7 (Version None)
Quarter: 2009Q4

REPORT INFORMATION
  Report Type: 
  Country: None (occurrence: None)
  Receive Date: 20091016
  Receipt Date: 20091009
  Transmission Date: 20100525
  Serious: Yes (Hospitalization)
  Sender: FDA-Public Use
  Company Number: JP-JNJFOC-20091003737

PATIENT
  Sex: Female
  Weight: 54 kg

DRUGS (17)
  1. BLINDED; GOLIMUMA [Suspect]
     Route: 058
  2. BLINDED; GOLIMUMA [Suspect]
     Route: 058
  3. BLINDED; GOLIMUMA [Suspect]
     Route: 058
  4. BLINDED; GOLIMUMA [Suspect]
     Route: 058
  5. BLINDED; GOLIMUMA [Suspect]
     Route: 058
  6. BLINDED; GOLIMUMA [Suspect]
     Route: 058
  7. BLINDED; GOLIMUMA [Suspect]
     Indication: RHEUMATOID ARTHRITIS
     Route: 058
  8. PLACEBO [Suspect]
     Route: 058
  9. PLACEBO [Suspect]
     Route: 058
  10. PLACEBO [Suspect]
     Route: 058
  11. PLACEBO [Suspect]
     Route: 058
  12. PLACEBO [Suspect]
     Route: 058
  13. PLACEBO [Suspect]
     Route: 058
  14. PLACEBO [Suspect]
     Indication: RHEUMATOID ARTHRITIS
     Route: 058
  15. CELECOX [Concomitant]
     Indication: RHEUMATOID ARTHRITIS
     Route: 048
  16. MOHRUS [Concomitant]
     Indication: RHEUMATOID ARTHRITIS
     Route: 062
  17. RIMATIL [Concomitant]
     Indication: RHEUMATOID ARTHRITIS
     Route: 048

REACTIONS (1)
  - BREAST CANCER [None]
